FAERS Safety Report 8207723-7 (Version None)
Quarter: 2012Q1

REPORT INFORMATION
  Report Type: 
  Country: None (occurrence: None)
  Receive Date: 20120313
  Receipt Date: 20120313
  Transmission Date: 20120608
  Serious: No
  Sender: FDA-Public Use
  Company Number: None

PATIENT
  Sex: Female
  Weight: 76.7 kg

DRUGS (3)
  1. NEULASTA [Suspect]
     Dosage: 24 MG
  2. DOXORUBICIN HCL [Suspect]
     Dosage: 464 MG
  3. CYCLOPHOSPHAMIDE [Suspect]
     Dosage: 4632 MG

REACTIONS (6)
  - IDIOSYNCRATIC DRUG REACTION [None]
  - FATIGUE [None]
  - PYREXIA [None]
  - NEUTROPENIA [None]
  - CHILLS [None]
  - STOMATITIS [None]
